FAERS Safety Report 16348143 (Version 1)
Quarter: 2019Q2

REPORT INFORMATION
  Report Type: Spontaneous
  Country: GB (occurrence: GB)
  Receive Date: 20190523
  Receipt Date: 20190523
  Transmission Date: 20190711
  Serious: Yes (Disabling, Other)
  Sender: FDA-Public Use
  Company Number: GB-MYLANLABS-2019M1047425

PATIENT
  Age: 48 Year
  Sex: Male
  Weight: 103.86 kg

DRUGS (3)
  1. RISPERIDONE. [Suspect]
     Active Substance: RISPERIDONE
     Indication: CEREBROVASCULAR DISORDER
     Dosage: 6 MILLIGRAM (REDUCED TO 5.5 MGS)
     Route: 048
     Dates: start: 20150110
  2. RISPERIDONE. [Suspect]
     Active Substance: RISPERIDONE
     Dosage: 5.5 MILLIGRAM
     Route: 048
  3. PROCYCLIDINE [Concomitant]
     Active Substance: PROCYCLIDINE
     Dosage: UNK

REACTIONS (6)
  - Dyspnoea [Not Recovered/Not Resolved]
  - Dyskinesia [Not Recovered/Not Resolved]
  - Muscle spasms [Not Recovered/Not Resolved]
  - Staring [Not Recovered/Not Resolved]
  - Cough [Not Recovered/Not Resolved]
  - Gait disturbance [Not Recovered/Not Resolved]

NARRATIVE: CASE EVENT DATE: 20180409
